FAERS Safety Report 8954307 (Version 1)
Quarter: 2012Q4

REPORT INFORMATION
  Report Type: 
  Country: US (occurrence: US)
  Receive Date: 20121207
  Receipt Date: 20121207
  Transmission Date: 20130627
  Serious: No
  Sender: FDA-Public Use
  Company Number: US-VERTEX PHARMACEUTICALS INC.-2012-025627

PATIENT
  Age: 54 Year
  Sex: Female
  Weight: 71 kg

DRUGS (11)
  1. VX-950 (TELAPREVIR) [Suspect]
     Indication: HEPATITIS C
     Dosage: 750 mg, tid
     Route: 048
  2. PEGASYS [Concomitant]
     Dosage: 180 ?g, UNK
  3. RIBAVIRIN [Concomitant]
     Indication: HEPATITIS C
     Dosage: 200 mg, UNK
  4. VITAMIN AD [Concomitant]
  5. SELENIUM [Concomitant]
  6. CALCIUM D                          /00944201/ [Concomitant]
  7. TYLENOL /00020001/ [Concomitant]
     Dosage: 650 mg, UNK
  8. BIOTIN [Concomitant]
     Dosage: 2500 ?g, UNK
  9. LOMOTIL [Concomitant]
     Dosage: 2.5 mg, UNK
  10. SYNTHROID [Concomitant]
     Dosage: 137 ?g, UNK
  11. PROCRIT                            /00909301/ [Concomitant]

REACTIONS (2)
  - Haemoglobin decreased [Unknown]
  - Diarrhoea [Unknown]
